FAERS Safety Report 7826881-7 (Version None)
Quarter: 2011Q4

REPORT INFORMATION
  Report Type: 
  Country: None (occurrence: None)
  Receive Date: 20111020
  Receipt Date: 20111010
  Transmission Date: 20120403
  Serious: Yes (Hospitalization)
  Sender: FDA-Public Use
  Company Number: US-JNJFOC-20111004512

PATIENT
  Sex: Female
  Weight: 63.5 kg

DRUGS (3)
  1. LEXAPRO [Concomitant]
     Indication: DEPRESSION
     Route: 048
     Dates: end: 20110201
  2. REMICADE [Suspect]
     Indication: COLITIS ULCERATIVE
     Route: 042
     Dates: start: 20020101
  3. STEROIDS NOS [Suspect]
     Indication: PRODUCT USED FOR UNKNOWN INDICATION
     Route: 065

REACTIONS (8)
  - VOMITING [None]
  - PSORIATIC ARTHROPATHY [None]
  - SYNCOPE [None]
  - HYPERHIDROSIS [None]
  - PSORIASIS [None]
  - COLECTOMY [None]
  - NECROSIS [None]
  - HYPOTHYROIDISM [None]
